FAERS Safety Report 8152550 (Version 2)
Quarter: 2013Q1

REPORT INFORMATION
  Report Type: Spontaneous
  Country: US (occurrence: US)
  Receive Date: 20110922
  Receipt Date: 20130218
  Transmission Date: 20140127
  Serious: Yes (Other)
  Sender: FDA-Public Use
  Company Number: US-ASTRAZENECA-2011SE12573

PATIENT
  Sex: Male

DRUGS (10)
  1. SEROQUEL [Suspect]
     Dosage: TAKE 1 TABLET TWICE A DAY INCREASE TO 1 EVERY MORNING AND 2 QHS
     Route: 048
     Dates: start: 20011123, end: 20011127
  2. SEROQUEL [Suspect]
     Dosage: INCREASE TO 2 EVERY MORNING AND 2 QHS
     Route: 048
     Dates: start: 20011125, end: 20011127
  3. SEROQUEL [Suspect]
     Dosage: INCREASE TO 3 EVERY MORNING AND 3 QHS
     Route: 048
     Dates: start: 20011127, end: 20011127
  4. SEROQUEL [Suspect]
     Route: 048
     Dates: start: 20011206, end: 20020105
  5. PREDNISONE [Concomitant]
     Dosage: 8 TAB EVERY DAY FOR 2 DAYS, THEN 4 TABLETS EVERY DAY FOR 2 DAYS
     Dates: start: 20011120, end: 20011220
  6. PREDNISONE [Concomitant]
     Dosage: THEN TAKE 2 TAB EVERY DAY FOR 2 DAYS THEN TAKE 1 TAB FOR 1 DAY THEN STOP
     Dates: start: 20011120, end: 20011220
  7. SULPHAMETHOXAZOLE/TRIMETH [Concomitant]
     Dosage: 800/160 MG TAKE 1 TAB TWICE A DAY UNTIL GONE
     Dates: start: 20011120, end: 20011127
  8. OLANZAPINE [Concomitant]
     Route: 048
     Dates: start: 20010710, end: 20010919
  9. FELODIPINE [Concomitant]
     Dates: end: 2002
  10. BACTRIM DS [Concomitant]
     Route: 048
     Dates: start: 200302

REACTIONS (3)
  - Pancreatitis [Unknown]
  - Diabetic coma [Unknown]
  - Type 2 diabetes mellitus [Unknown]
